FAERS Safety Report 5479352-X (Version None)
Quarter: 2007Q4

REPORT INFORMATION
  Report Type: 
  Country: None (occurrence: None)
  Receive Date: 20071003
  Receipt Date: 20071003
  Transmission Date: 20080405
  Serious: Yes (Hospitalization)
  Sender: FDA-Public Use
  Company Number: None

PATIENT
  Age: 33 Year
  Sex: Male

DRUGS (2)
  1. NAPROXEN [Suspect]
     Indication: HEADACHE
     Dosage: 220MG PO
     Route: 048
     Dates: start: 20070909, end: 20070916
  2. ACETAMINOPHEN/ASPIRIN [Suspect]
     Dosage: PO
     Route: 048
     Dates: start: 20070909, end: 20070916

REACTIONS (7)
  - ANAEMIA [None]
  - DIZZINESS [None]
  - GASTRITIS [None]
  - GASTROINTESTINAL HAEMORRHAGE [None]
  - MENORRHAGIA [None]
  - PARADOXICAL DRUG REACTION [None]
  - PROCEDURAL COMPLICATION [None]
